FAERS Safety Report 11321298 (Version 1)
Quarter: 2015Q3

REPORT INFORMATION
  Report Type: Spontaneous
  Country: GB (occurrence: GB)
  Receive Date: 20150729
  Receipt Date: 20150729
  Transmission Date: 20151125
  Serious: Yes (Other)
  Sender: FDA-Public Use
  Company Number: GB-BAYER-2015-388721

PATIENT
  Age: 20 Year
  Sex: Male
  Weight: 86 kg

DRUGS (1)
  1. ACETYLSALICYLIC ACID (} 100 MG) [Suspect]
     Active Substance: ASPIRIN
     Dosage: UNK
     Dates: start: 20150717

REACTIONS (1)
  - Haemorrhagic diathesis [Unknown]

NARRATIVE: CASE EVENT DATE: 20150717
